FAERS Safety Report 21478424 (Version 2)
Quarter: 2022Q4

REPORT INFORMATION
  Report Type: Report from Study
  Country: PR (occurrence: PR)
  Receive Date: 20221019
  Receipt Date: 20221103
  Transmission Date: 20230112
  Serious: Yes (Other)
  Sender: FDA-Public Use
  Company Number: PR-ABBVIE-4164642

PATIENT
  Sex: Female
  Weight: 71.667 kg

DRUGS (17)
  1. HUMIRA [Suspect]
     Active Substance: ADALIMUMAB
     Indication: Rheumatoid arthritis
     Dosage: 40MG
     Route: 058
     Dates: start: 2012
  2. Gabepentin (Neurontin) [Concomitant]
     Indication: Neuropathy peripheral
     Dosage: 300MG
     Route: 048
     Dates: start: 2022
  3. LOSARTAN [Concomitant]
     Active Substance: LOSARTAN
     Indication: Hypertension
     Dosage: 50 MG
     Route: 048
     Dates: start: 2021
  4. Sucralfate  (Carafate) [Concomitant]
     Indication: Abdominal pain upper
     Dosage: 1 MG
     Route: 048
     Dates: start: 2018
  5. METHOTREXATE [Concomitant]
     Active Substance: METHOTREXATE
     Indication: Rheumatoid arthritis
     Dosage: .5
     Route: 065
     Dates: start: 2012
  6. MOTRIN [Concomitant]
     Active Substance: IBUPROFEN
     Indication: Pain
     Dosage: 800 MG
     Route: 048
  7. Cevimeline (Evoxac) [Concomitant]
     Indication: Sjogren^s syndrome
     Dosage: 30 MG
     Route: 048
     Dates: start: 2017
  8. PEPCID [Concomitant]
     Active Substance: FAMOTIDINE
     Indication: Gastric disorder
     Dosage: 20 MG , START DATE 2012
     Route: 048
  9. CELEBREX [Concomitant]
     Active Substance: CELECOXIB
     Indication: Pain
     Dosage: 200MG
     Route: 048
     Dates: start: 2022
  10. METOPROLOL [Concomitant]
     Active Substance: METOPROLOL
     Indication: Hypertension
     Dosage: START DATE 2012, 50 MG
     Route: 048
  11. LIPITOR [Concomitant]
     Active Substance: ATORVASTATIN CALCIUM
     Indication: Blood cholesterol
     Dosage: 20 MG
     Route: 048
     Dates: start: 2021
  12. Lansoprazole  (Prevacid) [Concomitant]
     Indication: Gastric disorder
     Dosage: 30 MG
     Route: 048
     Dates: start: 2012
  13. HYDROXYCHLOROQUINE [Concomitant]
     Active Substance: HYDROXYCHLOROQUINE
     Indication: Product used for unknown indication
     Dosage: START DATE 2012, 25 MG
     Route: 048
  14. FOLIC ACID [Concomitant]
     Active Substance: FOLIC ACID
     Indication: Rheumatoid arthritis
     Dosage: 1 MG
     Route: 048
     Dates: start: 2012
  15. METFORMIN [Concomitant]
     Active Substance: METFORMIN HYDROCHLORIDE
     Indication: Blood glucose decreased
     Dosage: 500MG
     Route: 048
     Dates: start: 2012
  16. SYNTHROID [Concomitant]
     Active Substance: LEVOTHYROXINE SODIUM
     Indication: Thyroid disorder
     Dosage: 50 MG
     Route: 048
     Dates: start: 2012
  17. Covid-19 vaccine [Concomitant]
     Indication: COVID-19 immunisation
     Dosage: TIME INTERVAL: TOTAL
     Route: 030

REACTIONS (2)
  - Intervertebral disc protrusion [Not Recovered/Not Resolved]
  - Arthralgia [Not Recovered/Not Resolved]

NARRATIVE: CASE EVENT DATE: 20120101
